FAERS Safety Report 10392772 (Version 35)
Quarter: 2016Q4

REPORT INFORMATION
  Report Type: Report from Study
  Country: CA (occurrence: CA)
  Receive Date: 20140819
  Receipt Date: 20161222
  Transmission Date: 20170206
  Serious: Yes (Hospitalization, Other)
  Sender: FDA-Public Use
  Company Number: CA-ROCHE-1448798

PATIENT
  Age: 74 Year
  Sex: Female
  Weight: 71 kg

DRUGS (14)
  1. CONJUGATED LINOLEIC ACID [Concomitant]
  2. RITUXAN [Suspect]
     Active Substance: RITUXIMAB
     Indication: RHEUMATOID ARTHRITIS
     Route: 042
     Dates: start: 20100311, end: 20100324
  3. PREDNISONE. [Suspect]
     Active Substance: PREDNISONE
     Indication: PRODUCT USED FOR UNKNOWN INDICATION
     Route: 065
  4. TYLENOL WITH CODEINE [Concomitant]
     Active Substance: ACETAMINOPHEN\CODEINE PHOSPHATE
     Route: 065
  5. EPIPEN [Concomitant]
     Active Substance: EPINEPHRINE
     Dosage: AS NEEDED
     Route: 065
  6. APO-AMLODIPINE [Suspect]
     Active Substance: AMLODIPINE BESYLATE
     Indication: HYPERTENSION
     Route: 065
     Dates: end: 20150501
  7. COENZYME Q-10 [Concomitant]
  8. ACTEMRA [Suspect]
     Active Substance: TOCILIZUMAB
     Route: 042
     Dates: start: 20150309
  9. XELJANZ [Suspect]
     Active Substance: TOFACITINIB CITRATE
     Indication: RHEUMATOID ARTHRITIS
     Route: 065
     Dates: start: 20141226
  10. NAPROSYN [Suspect]
     Active Substance: NAPROXEN
     Indication: PRODUCT USED FOR UNKNOWN INDICATION
     Route: 065
  11. ACTEMRA [Suspect]
     Active Substance: TOCILIZUMAB
     Indication: RHEUMATOID ARTHRITIS
     Route: 042
     Dates: start: 20150205
  12. ACLASTA [Concomitant]
     Active Substance: ZOLEDRONIC ACID
  13. SYNTHROID [Concomitant]
     Active Substance: LEVOTHYROXINE SODIUM
  14. KETOPROFEN. [Concomitant]
     Active Substance: KETOPROFEN

REACTIONS (38)
  - Hand deformity [Unknown]
  - Blood pressure increased [Unknown]
  - Musculoskeletal pain [Recovering/Resolving]
  - Urinary tract infection [Unknown]
  - Arthritis infective [Recovered/Resolved]
  - Dizziness [Unknown]
  - Decreased appetite [Unknown]
  - Gingival disorder [Unknown]
  - Eye infection [Recovering/Resolving]
  - Clostridium difficile infection [Unknown]
  - Dyspnoea [Unknown]
  - Oropharyngeal pain [Recovering/Resolving]
  - Asthenia [Unknown]
  - Scratch [Unknown]
  - Weight decreased [Not Recovered/Not Resolved]
  - Weight decreased [Unknown]
  - Hypoaesthesia oral [Unknown]
  - Arthralgia [Not Recovered/Not Resolved]
  - Drug hypersensitivity [Unknown]
  - Rhinorrhoea [Recovering/Resolving]
  - Pain in extremity [Recovering/Resolving]
  - Cerebrovascular accident [Unknown]
  - Cerebrovascular accident [Unknown]
  - Rash [Unknown]
  - Contusion [Unknown]
  - Nasopharyngitis [Not Recovered/Not Resolved]
  - Weight increased [Unknown]
  - Hypertension [Unknown]
  - Fall [Unknown]
  - Alopecia [Unknown]
  - Palpitations [Unknown]
  - Pain [Not Recovered/Not Resolved]
  - Fall [Unknown]
  - Drug ineffective [Unknown]
  - Dizziness [Unknown]
  - Incorrect dose administered [Unknown]
  - Blood pressure increased [Unknown]
  - Blood pressure systolic decreased [Unknown]

NARRATIVE: CASE EVENT DATE: 2015
